FAERS Safety Report 13932621 (Version 9)
Quarter: 2018Q2

REPORT INFORMATION
  Report Type: Report from Study
  Country: None (occurrence: DE)
  Receive Date: 20170904
  Receipt Date: 20180514
  Transmission Date: 20180711
  Serious: Yes (Hospitalization, Other)
  Sender: FDA-Public Use
  Company Number: DE-ABBVIE-17P-062-1919795-00

PATIENT
  Age: 70 Year
  Sex: Female

DRUGS (42)
  1. DUODOPA [Suspect]
     Active Substance: CARBIDOPA\LEVODOPA
     Dosage: MD 5.2 ML; CRD 3.6 ML / H; ED 2.5 ML
     Route: 050
     Dates: start: 2017
  2. DUODOPA [Suspect]
     Active Substance: CARBIDOPA\LEVODOPA
     Dosage: MD: 5.2 ML; CRD: 3.6 ML/H; ED: 2.5 ML
     Route: 050
  3. MIRTAZAPIN [Concomitant]
     Active Substance: MIRTAZAPINE
     Indication: PRODUCT USED FOR UNKNOWN INDICATION
  4. MACROGOLRATIOPHARM BALANCE [Concomitant]
     Indication: PRODUCT USED FOR UNKNOWN INDICATION
  5. DUODOPA [Suspect]
     Active Substance: CARBIDOPA\LEVODOPA
     Indication: PARKINSON^S DISEASE
     Dosage: MORNING DOSE: 5.2ML, CRD: 3.5ML/H, EVENING DOSE: 2.7ML
     Route: 050
     Dates: start: 20160128
  6. DUODOPA [Suspect]
     Active Substance: CARBIDOPA\LEVODOPA
     Dosage: CONTINUOUS DAILY RATE-DECREASED TO 3.4 ML/H.?MD 5.2 ML; CRD 3.4 ML/ H; ED 2.5 ML
     Route: 050
     Dates: end: 201802
  7. TRIHEXYPHENIDYL [Suspect]
     Active Substance: TRIHEXYPHENIDYL
     Route: 065
     Dates: start: 2017
  8. TRIHEXYPHENIDYL [Suspect]
     Active Substance: TRIHEXYPHENIDYL
     Indication: PRODUCT USED FOR UNKNOWN INDICATION
     Route: 065
     Dates: start: 201709, end: 201709
  9. B12 ANKERMANN [Concomitant]
     Indication: PRODUCT USED FOR UNKNOWN INDICATION
  10. ZOPICLON STADA [Concomitant]
     Active Substance: ZOPICLONE
     Indication: PRODUCT USED FOR UNKNOWN INDICATION
  11. NOVAMINSULFON [Concomitant]
     Active Substance: METAMIZOLE
     Indication: PRODUCT USED FOR UNKNOWN INDICATION
  12. DUODOPA [Suspect]
     Active Substance: CARBIDOPA\LEVODOPA
     Route: 050
  13. VITAMIN D [Concomitant]
     Active Substance: CHOLECALCIFEROL
     Indication: PRODUCT USED FOR UNKNOWN INDICATION
  14. NOVAMINSULFON-RATIOPHARM [Concomitant]
     Active Substance: METAMIZOLE
     Indication: PRODUCT USED FOR UNKNOWN INDICATION
     Dosage: FORM STRENGTH: 500MG/1ML DOSE: 1 ML?MAX. 3 TIMES DAILY, WHEN NEEDED
  15. DUODOPA [Suspect]
     Active Substance: CARBIDOPA\LEVODOPA
     Dosage: MD 5.2 ML; CRD 3.3 ML / H; ED 2.5 ML
     Route: 050
     Dates: start: 2017, end: 2017
  16. DUODOPA [Suspect]
     Active Substance: CARBIDOPA\LEVODOPA
     Dosage: MD 5.2 ML; CRD 3.4 ML / H; ED 2.5 ML
     Route: 050
     Dates: start: 2017, end: 2017
  17. GABAPENTIN. [Concomitant]
     Active Substance: GABAPENTIN
     Indication: PRODUCT USED FOR UNKNOWN INDICATION
  18. ZOPICLONE [Concomitant]
     Active Substance: ZOPICLONE
     Indication: PRODUCT USED FOR UNKNOWN INDICATION
  19. DOMPERIDONE RATIOPHARM [Concomitant]
     Indication: PRODUCT USED FOR UNKNOWN INDICATION
  20. FRESUBIN [Concomitant]
     Active Substance: AMINO ACIDS\DEXTROSE\ELECTROLYTES NOS\SOYBEAN OIL\VITAMINS
     Indication: PRODUCT USED FOR UNKNOWN INDICATION
     Dosage: 2KCAL/ML
  21. SPASMOLYT [Concomitant]
     Indication: PRODUCT USED FOR UNKNOWN INDICATION
  22. CLARIUM [Concomitant]
     Active Substance: CLARITHROMYCIN
     Indication: PRODUCT USED FOR UNKNOWN INDICATION
  23. DUODOPA [Suspect]
     Active Substance: CARBIDOPA\LEVODOPA
     Dosage: MD 5.2 ML; CRD 3.5 ML/ H TO 4.2 ML/ H; ED 2.5 ML
     Route: 050
     Dates: start: 2017, end: 2017
  24. DUODOPA [Suspect]
     Active Substance: CARBIDOPA\LEVODOPA
     Dosage: DOSE REDUCED
     Route: 050
     Dates: start: 2017, end: 2017
  25. DUODOPA [Suspect]
     Active Substance: CARBIDOPA\LEVODOPA
     Dosage: DOSE INCREASED
     Route: 050
     Dates: start: 2017, end: 2017
  26. TRIHEXYPHENIDYL [Suspect]
     Active Substance: TRIHEXYPHENIDYL
     Dosage: UNKNOWN, DECREASED
     Route: 065
     Dates: start: 2017, end: 2017
  27. DEKRISTOL [Concomitant]
     Active Substance: CHOLECALCIFEROL
     Indication: PRODUCT USED FOR UNKNOWN INDICATION
  28. GABAPENTIN HEXAL [Concomitant]
     Active Substance: GABAPENTIN
     Indication: PRODUCT USED FOR UNKNOWN INDICATION
     Dosage: 1 - MAX. 2 PER DAY
  29. PANTOPRAZOL [Concomitant]
     Active Substance: PANTOPRAZOLE SODIUM
     Indication: PRODUCT USED FOR UNKNOWN INDICATION
  30. DUODOPA [Suspect]
     Active Substance: CARBIDOPA\LEVODOPA
     Route: 050
  31. DUODOPA [Suspect]
     Active Substance: CARBIDOPA\LEVODOPA
     Dosage: DOSE REDUCED, CRD: 3.3 ML/H
     Route: 050
     Dates: start: 2017, end: 2017
  32. DUODOPA [Suspect]
     Active Substance: CARBIDOPA\LEVODOPA
     Dosage: MD 5.2 ML; CRD 3.5 ML/H BEFORE NOON AND 4.2 ML/H AFTER NOON; ED: 2.5 ML
     Route: 050
     Dates: start: 2017, end: 2017
  33. DUODOPA [Suspect]
     Active Substance: CARBIDOPA\LEVODOPA
     Dosage: MD 5.2 ML; CRD 3.6 ML/ H; ED 2.5
     Route: 050
     Dates: start: 201802
  34. DUODOPA [Suspect]
     Active Substance: CARBIDOPA\LEVODOPA
     Route: 050
  35. TRIHEXYPHENIDYL [Suspect]
     Active Substance: TRIHEXYPHENIDYL
     Dosage: UNKNOWN, INCREASED
     Route: 065
     Dates: start: 201709, end: 201709
  36. DOMPERIDONE [Concomitant]
     Active Substance: DOMPERIDONE
     Indication: PRODUCT USED FOR UNKNOWN INDICATION
  37. LEVODOP RETARD [Concomitant]
     Indication: PRODUCT USED FOR UNKNOWN INDICATION
     Dosage: NOCTE
  38. LEVOCOMP RETARD [Concomitant]
     Indication: PRODUCT USED FOR UNKNOWN INDICATION
     Dosage: 100/25 MG
  39. SERTRALINE [Concomitant]
     Active Substance: SERTRALINE HYDROCHLORIDE
     Indication: PRODUCT USED FOR UNKNOWN INDICATION
  40. DUODOPA [Suspect]
     Active Substance: CARBIDOPA\LEVODOPA
     Route: 050
     Dates: start: 20170523, end: 2017
  41. OXYBUTYNIN. [Concomitant]
     Active Substance: OXYBUTYNIN CHLORIDE
     Indication: PRODUCT USED FOR UNKNOWN INDICATION
  42. MIRTAZAPIN HEXAL [Concomitant]
     Active Substance: MIRTAZAPINE
     Indication: PRODUCT USED FOR UNKNOWN INDICATION

REACTIONS (39)
  - Stoma site inflammation [Not Recovered/Not Resolved]
  - Anxiety [Not Recovered/Not Resolved]
  - Mental disorder [Recovering/Resolving]
  - Back pain [Unknown]
  - Nervousness [Unknown]
  - Drug intolerance [Unknown]
  - Heart rate decreased [Unknown]
  - Paraesthesia [Not Recovered/Not Resolved]
  - Constipation [Unknown]
  - Nocturia [Unknown]
  - Nerve root compression [Unknown]
  - Urge incontinence [Unknown]
  - Dry mouth [Unknown]
  - Dystonia [Unknown]
  - Depression [Not Recovered/Not Resolved]
  - Malaise [Unknown]
  - Akinesia [Not Recovered/Not Resolved]
  - Akinesia [Recovered/Resolved]
  - Muscle spasms [Unknown]
  - Panic attack [Not Recovered/Not Resolved]
  - Hypoaesthesia [Unknown]
  - Bundle branch block left [Unknown]
  - Electrocardiogram repolarisation abnormality [Unknown]
  - Muscle spasms [Not Recovered/Not Resolved]
  - Stoma site haemorrhage [Not Recovered/Not Resolved]
  - Vertebral foraminal stenosis [Unknown]
  - Cervical spinal stenosis [Unknown]
  - Gait disturbance [Unknown]
  - Tremor [Not Recovered/Not Resolved]
  - Depression [Unknown]
  - Sleep disorder [Recovering/Resolving]
  - Agitation [Unknown]
  - Palpitations [Unknown]
  - Weight decreased [Not Recovered/Not Resolved]
  - Hyperkinesia [Not Recovered/Not Resolved]
  - Dyskinesia [Unknown]
  - Stoma site pain [Not Recovered/Not Resolved]
  - Balance disorder [Unknown]
  - Parosmia [Unknown]

NARRATIVE: CASE EVENT DATE: 201603
